FAERS Safety Report 17799098 (Version 1)
Quarter: 2020Q2

REPORT INFORMATION
  Report Type: Spontaneous
  Country: ES (occurrence: ES)
  Receive Date: 20200518
  Receipt Date: 20200518
  Transmission Date: 20200714
  Serious: Yes (Hospitalization)
  Sender: FDA-Public Use
  Company Number: ES-TEVA-2020-ES-1235507

PATIENT
  Age: 69 Year
  Sex: Female

DRUGS (1)
  1. AMOXICILINA / ACIDO CLAVULANICO 875/125 MG COMPRIMIDOS EFG [Suspect]
     Active Substance: AMOXICILLIN\CLAVULANIC ACID
     Indication: ENDODONTIC PROCEDURE
     Dosage: 3 DOSAGE FORMS DAILY;
     Route: 048
     Dates: start: 20191029, end: 20200122

REACTIONS (1)
  - Hepatitis cholestatic [Recovered/Resolved]

NARRATIVE: CASE EVENT DATE: 20191029
